FAERS Safety Report 4642767-3 (Version None)
Quarter: 2005Q2

REPORT INFORMATION
  Report Type: 
  Country: None (occurrence: None)
  Receive Date: 20050420
  Receipt Date: 20050407
  Transmission Date: 20051028
  Serious: Yes (Life-Threatening, Hospitalization, Disabling, Other)
  Sender: FDA-Public Use
  Company Number: 2005057501

PATIENT
  Age: 84 Year
  Sex: Female

DRUGS (11)
  1. PREDNISONE [Suspect]
     Indication: BRONCHITIS
     Dosage: (1 MG), ORAL
     Route: 048
     Dates: start: 20041201, end: 20050404
  2. ALENDRONIC ACID (ALENDRONIC ACID) [Suspect]
     Indication: OSTEOPENIA
     Dosage: 70 MG(70 MG, 1 IN 1 WK), ORAL
     Route: 048
     Dates: start: 20030728, end: 20050404
  3. FUROSEMIDE [Concomitant]
  4. LEVOTHYROXINE SODIUM [Concomitant]
  5. QUINAPRIL HCL [Concomitant]
  6. SALMETEROL (SALMETEROL) [Concomitant]
  7. FLUTICASONE PROPIONATE [Concomitant]
  8. TERBUTALINE SULFATE [Concomitant]
  9. TRAMADOL HCL [Concomitant]
  10. FERROUS SULFATE TAB [Concomitant]
  11. DOXAZOSIN (DOXAZOSIN) [Concomitant]

REACTIONS (4)
  - BRONCHITIS [None]
  - DRUG INEFFECTIVE [None]
  - DUODENAL ULCER PERFORATION [None]
  - PERITONITIS [None]
